FAERS Safety Report 7726691-5 (Version None)
Quarter: 2011Q3

REPORT INFORMATION
  Report Type: 
  Country: None (occurrence: None)
  Receive Date: 20110902
  Receipt Date: 20110902
  Transmission Date: 20111222
  Serious: Yes (Other)
  Sender: FDA-Public Use
  Company Number: None

PATIENT
  Age: 64 Year
  Sex: Female
  Weight: 63.502 kg

DRUGS (1)
  1. MALARONE [Suspect]
     Indication: MALARIA PROPHYLAXIS
     Dosage: ONE PILL
     Route: 050
     Dates: start: 20110802, end: 20110817

REACTIONS (4)
  - PRURITUS [None]
  - RASH GENERALISED [None]
  - IMPAIRED WORK ABILITY [None]
  - URTICARIA [None]
